FAERS Safety Report 5522117-0 (Version None)
Quarter: 2007Q4

REPORT INFORMATION
  Report Type: 
  Country: None (occurrence: None)
  Receive Date: 20071120
  Receipt Date: 20071112
  Transmission Date: 20080405
  Serious: Yes (Other)
  Sender: FDA-Public Use
  Company Number: CA-JNJFOC-20071104804

PATIENT
  Sex: Female
  Weight: 41.5 kg

DRUGS (1)
  1. REMICADE [Suspect]
     Indication: RHEUMATOID ARTHRITIS
     Route: 042

REACTIONS (4)
  - EYE PAIN [None]
  - FACE OEDEMA [None]
  - FACIAL PAIN [None]
  - LACRIMATION INCREASED [None]
